FAERS Safety Report 10236347 (Version 1)
Quarter: 2014Q2

REPORT INFORMATION
  Report Type: Spontaneous
  Country: US (occurrence: US)
  Receive Date: 20140613
  Receipt Date: 20140613
  Transmission Date: 20141212
  Serious: No
  Sender: FDA-Public Use
  Company Number: US-GLAXOSMITHKLINE-A1048047A

PATIENT
  Age: 44 Year
  Sex: Female

DRUGS (4)
  1. TREXIMET [Suspect]
     Indication: MIGRAINE
     Dosage: 1TAB AS REQUIRED
     Route: 048
     Dates: start: 201111
  2. ASPIRIN [Concomitant]
  3. ALBUTEROL INHALER [Concomitant]
  4. MUCINEX [Concomitant]

REACTIONS (1)
  - Headache [Not Recovered/Not Resolved]
